FAERS Safety Report 14689669 (Version 1)
Quarter: 2018Q1

REPORT INFORMATION
  Report Type: Spontaneous
  Country: GB (occurrence: GB)
  Receive Date: 20180328
  Receipt Date: 20180328
  Transmission Date: 20180509
  Serious: Yes (Other)
  Sender: FDA-Public Use
  Company Number: GB-PFIZER INC-2018123284

PATIENT
  Age: 53 Year
  Sex: Female

DRUGS (1)
  1. PACLITAXEL. [Suspect]
     Active Substance: PACLITAXEL
     Dosage: 1 DF, EVERY 3 WEEKS (SECOND CYCLE)

REACTIONS (4)
  - Visual impairment [Unknown]
  - Anxiety [Unknown]
  - Hypotension [Unknown]
  - Flushing [Unknown]
